FAERS Safety Report 26193617 (Version 1)
Quarter: 2025Q4

REPORT INFORMATION
  Report Type: Spontaneous
  Country: US (occurrence: None)
  Receive Date: 20251223
  Receipt Date: 20251223
  Transmission Date: 20260117
  Serious: Yes (Life-Threatening, Hospitalization, Disabling)
  Sender: FDA-CTU
  Company Number: None

PATIENT
  Age: 49 Year
  Sex: Female
  Weight: 56.7 kg

DRUGS (4)
  1. DEXEDRINE SPANSULE [Suspect]
     Active Substance: DEXTROAMPHETAMINE SULFATE
     Indication: Attention deficit hyperactivity disorder
     Dosage: FREQUENCY : DAILY;
     Route: 048
     Dates: start: 201104, end: 201110
  2. ECHINACEA [Concomitant]
     Active Substance: ECHINACEA, UNSPECIFIED
  3. VITAMINS [Concomitant]
     Active Substance: VITAMINS
  4. Dexedrine used at time.  NO longer uses [Concomitant]

REACTIONS (2)
  - Adverse drug reaction [None]
  - Illness [None]

NARRATIVE: CASE EVENT DATE: 20111117
